FAERS Safety Report 12931982 (Version 1)
Quarter: 2016Q4

REPORT INFORMATION
  Report Type: Spontaneous
  Country: US (occurrence: US)
  Receive Date: 20161111
  Receipt Date: 20161111
  Transmission Date: 20170207
  Serious: Yes (Death, Hospitalization, Other)
  Sender: FDA-Public Use
  Company Number: US-ABBVIE-16K-163-1774876-00

PATIENT
  Sex: Female

DRUGS (1)
  1. DUODOPA [Suspect]
     Active Substance: CARBIDOPA\LEVODOPA
     Indication: PARKINSON^S DISEASE
     Route: 050
     Dates: start: 201607, end: 201610

REACTIONS (6)
  - Heart rate increased [Fatal]
  - Parkinson^s disease [Fatal]
  - Hypotension [Fatal]
  - Skin discolouration [Unknown]
  - Oxygen saturation decreased [Unknown]
  - Apnoea [Fatal]

NARRATIVE: CASE EVENT DATE: 2016
